FAERS Safety Report 15246517 (Version 2)
Quarter: 2018Q3

REPORT INFORMATION
  Report Type: Spontaneous
  Country: US (occurrence: US)
  Receive Date: 20180806
  Receipt Date: 20180903
  Transmission Date: 20181010
  Serious: No
  Sender: FDA-Public Use
  Company Number: US-SA-2018SA206575

PATIENT
  Sex: Female

DRUGS (2)
  1. ENOXAPARIN SODIUM ? WINTHROP [Suspect]
     Active Substance: ENOXAPARIN SODIUM
     Dosage: 50 MG, BID
     Route: 033
     Dates: start: 20180725, end: 20180726
  2. ENOXAPARIN SODIUM ? WINTHROP [Suspect]
     Active Substance: ENOXAPARIN SODIUM
     Dosage: 50 MG, BID
     Route: 033
     Dates: start: 20180728, end: 20180729

REACTIONS (3)
  - Injection site pain [Not Recovered/Not Resolved]
  - Syringe issue [Unknown]
  - Extra dose administered [Unknown]
